FAERS Safety Report 6342363-6 (Version None)
Quarter: 2009Q3

REPORT INFORMATION
  Report Type: 
  Country: None (occurrence: None)
  Receive Date: 20090907
  Receipt Date: 20090827
  Transmission Date: 20100115
  Serious: Yes (Hospitalization)
  Sender: FDA-Public Use
  Company Number: JP-ELI_LILLY_AND_COMPANY-JP200908004839

PATIENT
  Sex: Male
  Weight: 63 kg

DRUGS (9)
  1. ALIMTA [Suspect]
     Indication: LUNG ADENOCARCINOMA STAGE III
     Dosage: 500 MG, OTHER
     Route: 042
     Dates: start: 20090813, end: 20090813
  2. FOLIC ACID [Concomitant]
     Route: 048
  3. VITAMIN B-12 [Concomitant]
     Route: 030
  4. PREDONINE [Concomitant]
     Indication: DERMATOMYOSITIS
     Dosage: 20 MG, DAILY (1/D)
     Route: 048
     Dates: start: 20090711
  5. BAKTAR [Concomitant]
     Indication: PROPHYLAXIS
     Dosage: 1 D/F, DAILY (1/D)
     Route: 048
     Dates: start: 20090711
  6. ASPIRIN [Concomitant]
     Indication: PROPHYLAXIS
     Dosage: 100 MG, DAILY (1/D)
     Route: 048
  7. LOSARTAN POTASSIUM AND HYDROCHLOROTHIAZIDE [Concomitant]
     Indication: HYPERTENSION
     Dosage: 1 D/F, DAILY (1/D)
     Route: 048
  8. ADALAT [Concomitant]
     Indication: HYPERTENSION
     Dosage: 1 D/F, DAILY (1/D)
     Route: 048
  9. SPIRIVA [Concomitant]
     Indication: CHRONIC OBSTRUCTIVE PULMONARY DISEASE
     Dosage: 1 D/F, DAILY (1/D)
     Route: 055

REACTIONS (1)
  - GASTRITIS HAEMORRHAGIC [None]
